FAERS Safety Report 5123654-3 (Version None)
Quarter: 2006Q4

REPORT INFORMATION
  Report Type: 
  Country: None (occurrence: None)
  Receive Date: 20060910
  Receipt Date: 20050816
  Transmission Date: 20070319
  Serious: Yes (Other)
  Sender: FDA-Public Use
  Company Number: US_990522018

PATIENT
  Age: 35 Year
  Sex: Male
  Weight: 102.3 kg

DRUGS (4)
  1. HUMULIN N [Suspect]
     Indication: DIABETES MELLITUS
     Dosage: 100  U , DAILY (1/D) SUBCUTANEOUS
     Route: 058
     Dates: start: 19990101
  2. HUMULIN R [Suspect]
     Indication: DIABETES MELLITUS
     Dosage: 30 U, DAILY (1/D), SUBSTANCEOUS
     Route: 058
     Dates: start: 19990101
  3. HUMULIN (HUMAN INSULIN (RDNA ORIGIN) [Suspect]
     Indication: DIABETES MELLITUS
  4. INSULIN (INSULIN ANIMAL) VIAL [Suspect]
     Indication: DIABETES MELLITUS

REACTIONS (10)
  - BLOOD GLUCOSE DECREASED [None]
  - DEPRESSION [None]
  - FEELING ABNORMAL [None]
  - HYPOGLYCAEMIA UNAWARENESS [None]
  - LOSS OF CONSCIOUSNESS [None]
  - MALAISE [None]
  - MOOD SWINGS [None]
  - NASOPHARYNGITIS [None]
  - PALLOR [None]
  - WEIGHT INCREASED [None]
